FAERS Safety Report 18726028 (Version 1)
Quarter: 2021Q1

REPORT INFORMATION
  Report Type: Spontaneous
  Country: CA (occurrence: CA)
  Receive Date: 20210111
  Receipt Date: 20210111
  Transmission Date: 20210419
  Serious: Yes (Other)
  Sender: FDA-Public Use
  Company Number: CA-B.I. PHARMACEUTICALS,INC./RIDGEFIELD-2021-BI-074803

PATIENT
  Sex: Male

DRUGS (3)
  1. SALBUTAMOL SULFATE [Suspect]
     Active Substance: ALBUTEROL SULFATE
     Indication: ASTHMA
     Dosage: 100 UG
  2. BREO ELLIPTA [Suspect]
     Active Substance: FLUTICASONE FUROATE\VILANTEROL TRIFENATATE
     Indication: ASTHMA
     Dosage: INHALATION, 1 DOSAGE FORM 1 IN 1 DAY
  3. SPIRIVA RESPIMAT [Suspect]
     Active Substance: TIOTROPIUM BROMIDE
     Indication: ASTHMA
     Dosage: 2 DOSAGE FORM 1 IN 1 DAY
     Route: 055

REACTIONS (5)
  - Blood count abnormal [Unknown]
  - Dyspnoea [Unknown]
  - Wheezing [Unknown]
  - Asthma [Unknown]
  - Drug ineffective [Unknown]
